FAERS Safety Report 17209731 (Version 1)
Quarter: 2019Q4

REPORT INFORMATION
  Report Type: Spontaneous
  Country: US (occurrence: US)
  Receive Date: 20191227
  Receipt Date: 20191227
  Transmission Date: 20200122
  Serious: Yes (Other)
  Sender: FDA-Public Use
  Company Number: US-SA-2019SA352709

PATIENT
  Age: 76 Year
  Sex: Female
  Weight: 72.5 kg

DRUGS (16)
  1. ARIMIDEX [Concomitant]
     Active Substance: ANASTROZOLE
     Indication: BREAST CANCER FEMALE
     Dosage: UNK
     Dates: start: 20160304, end: 20160803
  2. VENLAFAXINE [Concomitant]
     Active Substance: VENLAFAXINE HYDROCHLORIDE
     Dosage: UNK
     Dates: start: 20120101
  3. TYLENOL [Concomitant]
     Active Substance: ACETAMINOPHEN
     Dosage: UNK
     Dates: start: 20120101
  4. FLECAINIDE [Concomitant]
     Active Substance: FLECAINIDE
     Dosage: UNK
     Dates: start: 20120101
  5. ELIQUIS [Concomitant]
     Active Substance: APIXABAN
     Dosage: UNK
     Dates: start: 20150101, end: 20181231
  6. TAXOTERE [Suspect]
     Active Substance: DOCETAXEL
     Indication: BREAST CANCER FEMALE
     Dosage: UNK UNK, Q3W
     Route: 042
     Dates: start: 20160304, end: 20160304
  7. PERJETA [Concomitant]
     Active Substance: PERTUZUMAB
     Indication: BREAST CANCER FEMALE
     Dosage: UNK
     Dates: start: 20160504, end: 20160803
  8. METOPROLOL TARTRATE. [Concomitant]
     Active Substance: METOPROLOL TARTRATE
     Dosage: UNK
     Dates: start: 20150101, end: 20181231
  9. ASPIRIN [ACETYLSALICYLIC ACID] [Concomitant]
     Active Substance: ASPIRIN
     Dosage: UNK
     Dates: start: 20120101
  10. TAXOTERE [Suspect]
     Active Substance: DOCETAXEL
     Dosage: UNK UNK, Q3W
     Route: 042
     Dates: start: 20160803, end: 20160803
  11. ANASTROZOLE. [Concomitant]
     Active Substance: ANASTROZOLE
     Dosage: UNK
     Dates: start: 20120101
  12. HERCEPTIN [Concomitant]
     Active Substance: TRASTUZUMAB
     Indication: BREAST CANCER FEMALE
     Dosage: UNK
     Dates: start: 20160504, end: 20160803
  13. NEULASTA [Concomitant]
     Active Substance: PEGFILGRASTIM
     Indication: BREAST CANCER FEMALE
     Dosage: UNK
     Dates: start: 20160304, end: 20160803
  14. LOVASTATIN. [Concomitant]
     Active Substance: LOVASTATIN
     Dosage: UNK
     Dates: start: 20120101
  15. TAMOXIFEN [Concomitant]
     Active Substance: TAMOXIFEN
     Indication: BREAST CANCER FEMALE
     Dosage: UNK
     Dates: start: 20160304, end: 20160803
  16. FLUOXETINE [Concomitant]
     Active Substance: FLUOXETINE HYDROCHLORIDE
     Dosage: UNK
     Dates: start: 20150101, end: 20181231

REACTIONS (2)
  - Alopecia [Recovering/Resolving]
  - Psychological trauma [Unknown]

NARRATIVE: CASE EVENT DATE: 20160701
